FAERS Safety Report 13404644 (Version 3)
Quarter: 2017Q2

REPORT INFORMATION
  Report Type: Spontaneous
  Country: AR (occurrence: AR)
  Receive Date: 20170405
  Receipt Date: 20170509
  Transmission Date: 20170830
  Serious: Yes (Other)
  Sender: FDA-Public Use
  Company Number: AR-ROCHE-1915678

PATIENT
  Age: 7 Year
  Sex: Female
  Weight: 38 kg

DRUGS (1)
  1. MABTHERA [Suspect]
     Active Substance: RITUXIMAB
     Indication: IMMUNE THROMBOCYTOPENIC PURPURA
     Dosage: 480MG ON 21/APR/2017 AND 27/APR/2017
     Route: 042
     Dates: start: 20170314

REACTIONS (2)
  - Off label use [Unknown]
  - Back pain [Not Recovered/Not Resolved]

NARRATIVE: CASE EVENT DATE: 20170314
